FAERS Safety Report 11135625 (Version 1)
Quarter: 2015Q2

REPORT INFORMATION
  Report Type: Spontaneous
  Country: US (occurrence: None)
  Receive Date: 20150522
  Receipt Date: 20150522
  Transmission Date: 20150821
  Serious: Yes (Hospitalization)
  Sender: FDA-Public Use
  Company Number: None

PATIENT
  Age: 60 Year
  Sex: Male
  Weight: 70.3 kg

DRUGS (15)
  1. FORTAZ [Concomitant]
     Active Substance: CEFTAZIDIME SODIUM
  2. PREDNISONE. [Concomitant]
     Active Substance: PREDNISONE
  3. INSULIN ASPART [Concomitant]
     Active Substance: INSULIN ASPART
  4. LEVAQUIN [Concomitant]
     Active Substance: LEVOFLOXACIN
  5. IRON [Concomitant]
     Active Substance: IRON
  6. VANCOMYCIN [Concomitant]
     Active Substance: VANCOMYCIN
  7. ANCEF [Concomitant]
     Active Substance: CEFAZOLIN SODIUM
  8. LANTUS [Concomitant]
     Active Substance: INSULIN GLARGINE
  9. FLAGYL [Concomitant]
     Active Substance: METRONIDAZOLE\METRONIDAZOLE HYDROCHLORIDE
  10. PROTONIX [Concomitant]
     Active Substance: PANTOPRAZOLE SODIUM
  11. CEFAZOLIN [Concomitant]
     Active Substance: CEFAZOLIN
  12. LIDOCAINE. [Concomitant]
     Active Substance: LIDOCAINE
  13. HARVONI [Suspect]
     Active Substance: LEDIPASVIR\SOFOSBUVIR
     Indication: HEPATITIS C
     Route: 048
     Dates: start: 20141115, end: 20150501
  14. PROGRAF [Concomitant]
     Active Substance: TACROLIMUS\TACROLIMUS ANHYDROUS
  15. ACTIGALL [Concomitant]
     Active Substance: URSODIOL

REACTIONS (1)
  - Traumatic haematoma [None]

NARRATIVE: CASE EVENT DATE: 20141119
